FAERS Safety Report 9364005 (Version 1)
Quarter: 2013Q2

REPORT INFORMATION
  Report Type: Spontaneous
  Country: US (occurrence: None)
  Receive Date: 20130619
  Receipt Date: 20130619
  Transmission Date: 20140414
  Serious: Yes (Other)
  Sender: FDA-Public Use
  Company Number: XL18413002827

PATIENT
  Age: 60 Year
  Sex: Male
  Weight: 93.2 kg

DRUGS (11)
  1. XL 184 [Suspect]
     Indication: PROSTATE CANCER
     Route: 048
     Dates: start: 20130403
  2. NORVASC (AMLODIPINE BESILATE) [Concomitant]
  3. LIPITOR (ATORVASTATIN CALCIUM) [Concomitant]
  4. COLACE [Concomitant]
  5. LUPRON DEPOT-3 MONTH (LEUPRORELIN ACETATE) [Concomitant]
  6. ZESTRIL (LISINOPRIL) [Concomitant]
  7. ZOFRAN (ONDANSETRON) [Concomitant]
  8. OXYCONTIN (OXCODONE HYDROCHLORIDE) [Concomitant]
  9. PREDNISONE (PREDNISONE) [Concomitant]
  10. FLOMAX (TAMSULOSIN HYDROCHLORIDE) [Concomitant]
  11. AMBIEN (ZOLPIDEM TARTRATE) [Concomitant]

REACTIONS (1)
  - Angioedema [None]
